FAERS Safety Report 4314358-5 (Version None)
Quarter: 2004Q1

REPORT INFORMATION
  Report Type: 
  Country: None (occurrence: None)
  Receive Date: 20040308
  Receipt Date: 20040223
  Transmission Date: 20041129
  Serious: Yes (Other)
  Sender: FDA-Public Use
  Company Number: 2004012231

PATIENT
  Sex: Female
  Weight: 61.2356 kg

DRUGS (3)
  1. NAVANE [Suspect]
     Indication: DEPRESSION
     Dosage: ORAL
     Route: 048
     Dates: start: 19790101, end: 19790101
  2. ZITHROMAX [Suspect]
     Indication: SINUSITIS
     Dosage: (DAILY), ORAL
     Route: 048
     Dates: start: 20040218, end: 20040220
  3. CLARITHROMYCIN [Suspect]
     Indication: UPPER RESPIRATORY TRACT INFECTION
     Dosage: ORAL
     Route: 048
     Dates: start: 19970101, end: 19970101

REACTIONS (16)
  - ANXIETY [None]
  - BLOOD PRESSURE INCREASED [None]
  - CEREBRAL DISORDER [None]
  - CONVULSION [None]
  - DIABETES MELLITUS [None]
  - DRUG HYPERSENSITIVITY [None]
  - DYSPEPSIA [None]
  - EYE PAIN [None]
  - FEELING ABNORMAL [None]
  - HALLUCINATION [None]
  - HEART RATE INCREASED [None]
  - PARANOIA [None]
  - SINUSITIS BACTERIAL [None]
  - UPPER RESPIRATORY TRACT INFECTION [None]
  - VIRAL INFECTION [None]
  - VULVOVAGINAL DISCOMFORT [None]
